FAERS Safety Report 13362428 (Version 1)
Quarter: 2017Q1

REPORT INFORMATION
  Report Type: Report from Study
  Country: JP (occurrence: JP)
  Receive Date: 20170323
  Receipt Date: 20170323
  Transmission Date: 20170429
  Serious: Yes (Death, Life-Threatening, Hospitalization)
  Sender: FDA-Public Use
  Company Number: PHHY2010JP100975

PATIENT
  Age: 49 Year
  Sex: Female
  Weight: 34 kg

DRUGS (18)
  1. TYKERB [Suspect]
     Active Substance: LAPATINIB DITOSYLATE
     Dosage: 750 MG,
     Route: 048
     Dates: start: 20101125, end: 20101130
  2. TYKERB [Suspect]
     Active Substance: LAPATINIB DITOSYLATE
     Dosage: 1000 MG,
     Route: 048
     Dates: start: 20101201, end: 20101207
  3. TYKERB [Suspect]
     Active Substance: LAPATINIB DITOSYLATE
     Dosage: 1250 MG,
     Route: 048
     Dates: start: 20101215, end: 20110728
  4. XELODA [Suspect]
     Active Substance: CAPECITABINE
     Indication: PRODUCT USED FOR UNKNOWN INDICATION
     Dosage: 2400 MG,
     Route: 048
     Dates: start: 20100112, end: 20100309
  5. EXCEGRAN [Concomitant]
     Active Substance: ZONISAMIDE
     Indication: SEIZURE
     Route: 048
     Dates: start: 20100309
  6. ALEVIATIN [Concomitant]
     Active Substance: PHENYTOIN SODIUM
     Indication: SEIZURE
     Route: 048
     Dates: start: 20100112, end: 20100308
  7. RINDERON V [Concomitant]
     Active Substance: BETAMETHASONE VALERATE
     Indication: BRAIN OEDEMA
     Route: 048
     Dates: start: 20100114
  8. PHENYTOIN. [Interacting]
     Active Substance: PHENYTOIN
     Indication: PRODUCT USED FOR UNKNOWN INDICATION
     Route: 065
  9. DEPAKENE [Concomitant]
     Active Substance: VALPROIC ACID
     Indication: SEIZURE
     Route: 048
     Dates: start: 20100309
  10. TYKERB [Suspect]
     Active Substance: LAPATINIB DITOSYLATE
     Indication: BREAST CANCER
     Dosage: 1250 MG,
     Route: 048
     Dates: start: 20100112, end: 20100309
  11. TYKERB [Suspect]
     Active Substance: LAPATINIB DITOSYLATE
     Dosage: 1250 MG,
     Route: 048
     Dates: start: 20100603, end: 20101124
  12. GABAPEN [Concomitant]
     Active Substance: GABAPENTIN
     Indication: PRODUCT USED FOR UNKNOWN INDICATION
     Route: 048
  13. XELODA [Suspect]
     Active Substance: CAPECITABINE
     Dosage: 2400 MG,
     Route: 048
     Dates: start: 20100603, end: 20101124
  14. XELODA [Suspect]
     Active Substance: CAPECITABINE
     Dosage: 1800 MG,
     Route: 048
     Dates: start: 20101125, end: 20110105
  15. XELODA [Suspect]
     Active Substance: CAPECITABINE
     Dosage: 2400 MG,
     Route: 048
     Dates: start: 20110106, end: 20110728
  16. GASTER [Concomitant]
     Active Substance: FAMOTIDINE
     Indication: GASTRITIS PROPHYLAXIS
     Route: 048
     Dates: start: 20100112
  17. TYKERB [Suspect]
     Active Substance: LAPATINIB DITOSYLATE
     Dosage: 1250 MG,
     Route: 048
     Dates: start: 20100314, end: 20100519
  18. XELODA [Suspect]
     Active Substance: CAPECITABINE
     Dosage: 2400 MG,
     Route: 048
     Dates: start: 20100314, end: 20100519

REACTIONS (11)
  - Pneumonia [Recovering/Resolving]
  - Infectious pleural effusion [Recovering/Resolving]
  - Nasopharyngitis [Not Recovered/Not Resolved]
  - Cough [Not Recovered/Not Resolved]
  - Seizure [Recovering/Resolving]
  - Decreased appetite [Recovering/Resolving]
  - Disuse syndrome [Fatal]
  - Diarrhoea [Recovering/Resolving]
  - Dehydration [Recovering/Resolving]
  - Diarrhoea [Recovering/Resolving]
  - Diarrhoea [Recovered/Resolved]

NARRATIVE: CASE EVENT DATE: 20100320
